FAERS Safety Report 18851822 (Version 1)
Quarter: 2021Q1

REPORT INFORMATION
  Report Type: Report from Study
  Country: CA (occurrence: CA)
  Receive Date: 20210205
  Receipt Date: 20210205
  Transmission Date: 20210420
  Serious: Yes (Other)
  Sender: FDA-Public Use
  Company Number: CA-JNJFOC-20210204150

PATIENT
  Age: 14 Year
  Sex: Female

DRUGS (1)
  1. REMICADE [Suspect]
     Active Substance: INFLIXIMAB
     Indication: COLITIS ULCERATIVE
     Route: 042
     Dates: start: 20201228

REACTIONS (7)
  - Off label use [Unknown]
  - Pallor [Unknown]
  - Diarrhoea [Unknown]
  - Malaise [Unknown]
  - Fatigue [Unknown]
  - Product use issue [Unknown]
  - Haematochezia [Unknown]

NARRATIVE: CASE EVENT DATE: 20201228
